FAERS Safety Report 4864302-7 (Version None)
Quarter: 2005Q4

REPORT INFORMATION
  Report Type: 
  Country: None (occurrence: None)
  Receive Date: 20051221
  Receipt Date: 20051221
  Transmission Date: 20060501
  Serious: Yes (Hospitalization, Other)
  Sender: FDA-Public Use
  Company Number: None

PATIENT
  Age: 9 Year
  Sex: Male
  Weight: 27.2158 kg

DRUGS (1)
  1. ADDERALL 10 [Suspect]
     Indication: ATTENTION DEFICIT/HYPERACTIVITY DISORDER
     Dosage: 10 MG QD  1 X 5 WEEKS ORAL ; 10 MG BID 1 WEEK ORAL
     Route: 048
     Dates: start: 19991006, end: 19991119

REACTIONS (6)
  - BIPOLAR DISORDER [None]
  - EDUCATIONAL PROBLEM [None]
  - MANIA [None]
  - OBSESSIVE-COMPULSIVE DISORDER [None]
  - PSYCHOTIC DISORDER [None]
  - THERAPY NON-RESPONDER [None]
